FAERS Safety Report 12295284 (Version 1)
Quarter: 2016Q2

REPORT INFORMATION
  Report Type: Report from Study
  Country: BR (occurrence: BR)
  Receive Date: 20160422
  Receipt Date: 20160422
  Transmission Date: 20160815
  Serious: Yes (Hospitalization)
  Sender: FDA-Public Use
  Company Number: BR-SA-2016SA046920

PATIENT
  Age: 55 Year
  Sex: Male
  Weight: 77 kg

DRUGS (1)
  1. FABRAZYME [Suspect]
     Active Substance: AGALSIDASE BETA
     Indication: FABRY^S DISEASE
     Dosage: 3 VIALS
     Route: 041
     Dates: start: 20151002, end: 20160129

REACTIONS (17)
  - Asthenia [Not Recovered/Not Resolved]
  - Fatigue [Not Recovered/Not Resolved]
  - Skin hyperpigmentation [Not Recovered/Not Resolved]
  - Impaired work ability [Not Recovered/Not Resolved]
  - Cachexia [Not Recovered/Not Resolved]
  - Sluggishness [Not Recovered/Not Resolved]
  - Musculoskeletal stiffness [Not Recovered/Not Resolved]
  - Pain in extremity [Not Recovered/Not Resolved]
  - Pain [Not Recovered/Not Resolved]
  - Feeding disorder [Not Recovered/Not Resolved]
  - Pyrexia [Recovered/Resolved]
  - Hyperhidrosis [Not Recovered/Not Resolved]
  - Hypersomnia [Unknown]
  - Sluggishness [Not Recovered/Not Resolved]
  - Diabetes mellitus [Unknown]
  - Burning sensation [Not Recovered/Not Resolved]
  - Feeling abnormal [Not Recovered/Not Resolved]

NARRATIVE: CASE EVENT DATE: 20151002
